FAERS Safety Report 5916998-6 (Version None)
Quarter: 2008Q4

REPORT INFORMATION
  Report Type: 
  Country: None (occurrence: None)
  Receive Date: 20081014
  Receipt Date: 20081006
  Transmission Date: 20090506
  Serious: Yes (Congenital Anomaly)
  Sender: FDA-Public Use
  Company Number: GB-RANBAXY-2008RR-18039

PATIENT
  Sex: Male
  Weight: 3.56 kg

DRUGS (4)
  1. LAMOTRIGINE 2MG DISPERSIBLE TABLET [Suspect]
     Indication: DRUG EXPOSURE DURING PREGNANCY
     Dosage: 300 MG, QD
     Route: 064
  2. TOPAMAX [Suspect]
     Indication: GRAND MAL CONVULSION
     Dosage: 250 MG, QD
     Route: 064
  3. TOPAMAX [Suspect]
     Indication: DRUG EXPOSURE DURING PREGNANCY
  4. PHENOBARBITONE [Suspect]
     Indication: DRUG EXPOSURE DURING PREGNANCY
     Dosage: 60 MG, QD
     Route: 064

REACTIONS (1)
  - CLEFT LIP AND PALATE [None]
